APPROVED DRUG PRODUCT: LOPERAMIDE HYDROCHLORIDE
Active Ingredient: LOPERAMIDE HYDROCHLORIDE
Strength: 2MG
Dosage Form/Route: TABLET;ORAL
Application: A073254 | Product #001
Applicant: CONTRACT PHARMACAL CORP
Approved: Jul 30, 1993 | RLD: No | RS: No | Type: DISCN